FAERS Safety Report 5947496-1 (Version None)
Quarter: 2008Q4

REPORT INFORMATION
  Report Type: 
  Country: None (occurrence: None)
  Receive Date: 20081110
  Receipt Date: 20081031
  Transmission Date: 20090506
  Serious: Yes (Other)
  Sender: FDA-Public Use
  Company Number: PT-MERCK-0811PRT00005

PATIENT
  Sex: Male
  Weight: 77 kg

DRUGS (1)
  1. FOSAMAX PLUS D [Suspect]
     Route: 048
     Dates: end: 20080101

REACTIONS (4)
  - LIP OEDEMA [None]
  - MALAISE [None]
  - PARAESTHESIA [None]
  - PHARYNGEAL STENOSIS [None]
